FAERS Safety Report 7619241-5 (Version None)
Quarter: 2011Q3

REPORT INFORMATION
  Report Type: 
  Country: None (occurrence: None)
  Receive Date: 20110718
  Receipt Date: 20110707
  Transmission Date: 20111222
  Serious: Yes (Hospitalization, Other)
  Sender: FDA-Public Use
  Company Number: US-ASTRAZENECA-2011SE08826

PATIENT
  Age: 61 Year
  Sex: Male
  Weight: 108.4 kg

DRUGS (5)
  1. MULTI-VITAMIN [Concomitant]
     Dosage: 1 TABLET DAILY
  2. ZETIA [Concomitant]
     Route: 048
  3. CRESTOR [Suspect]
     Indication: BLOOD CHOLESTEROL INCREASED
     Route: 048
     Dates: start: 20070101
  4. PERCOCET [Concomitant]
     Dosage: 5-325 MG TABLET AS DIRECTED
  5. ASPIR LOW [Concomitant]
     Route: 048

REACTIONS (7)
  - PALPITATIONS [None]
  - DYSPNOEA [None]
  - PROSTATIC OPERATION [None]
  - SKIN CANCER [None]
  - METASTASES TO RECTUM [None]
  - PROSTATE CANCER [None]
  - CHEST PAIN [None]
